FAERS Safety Report 9564393 (Version 2)
Quarter: 2013Q4

REPORT INFORMATION
  Report Type: Spontaneous
  Country: US (occurrence: US)
  Receive Date: 20130930
  Receipt Date: 20131115
  Transmission Date: 20140711
  Serious: Yes (Death)
  Sender: FDA-Public Use
  Company Number: US-BIOGENIDEC-2013BI091729

PATIENT
  Age: 38 Year
  Sex: Female

DRUGS (5)
  1. TYSABRI [Suspect]
     Indication: MULTIPLE SCLEROSIS
     Route: 042
     Dates: start: 20110211, end: 20130829
  2. MORPHINE ER [Concomitant]
     Route: 048
  3. VALIUM [Concomitant]
     Route: 048
  4. DEPAKOTE [Concomitant]
     Route: 048
  5. TIZANIDINE [Concomitant]
     Route: 048

REACTIONS (6)
  - Death [Fatal]
  - Malaise [Unknown]
  - Nausea [Unknown]
  - Vomiting [Unknown]
  - Migraine [Unknown]
  - Depressed mood [Unknown]
